FAERS Safety Report 14526868 (Version 1)
Quarter: 2018Q1

REPORT INFORMATION
  Report Type: Spontaneous
  Country: US (occurrence: US)
  Receive Date: 20180212
  Receipt Date: 20180212
  Transmission Date: 20180509
  Serious: Yes (Disabling)
  Sender: FDA-Public Use
  Company Number: None

PATIENT
  Sex: Female
  Weight: 69.75 kg

DRUGS (5)
  1. SEASONAL ALLERGY MEDICINE [Concomitant]
  2. VITAMIN D [Concomitant]
     Active Substance: CHOLECALCIFEROL
  3. DEPO-PROVERA [Suspect]
     Active Substance: MEDROXYPROGESTERONE ACETATE
     Indication: CONTRACEPTION
     Dosage: ?          OTHER FREQUENCY:EVERY 3 MONTHS;OTHER ROUTE:INJECTION?
     Dates: start: 20110309, end: 20130607
  4. CALCIUM [Concomitant]
     Active Substance: CALCIUM
  5. GLUCOSAMINE [Concomitant]
     Active Substance: GLUCOSAMINE

REACTIONS (4)
  - Amenorrhoea [None]
  - Osteopenia [None]
  - Menstrual disorder [None]
  - Osteoporosis [None]

NARRATIVE: CASE EVENT DATE: 20171229
